FAERS Safety Report 24438724 (Version 2)
Quarter: 2025Q1

REPORT INFORMATION
  Report Type: Spontaneous
  Country: FR (occurrence: FR)
  Receive Date: 20241015
  Receipt Date: 20250106
  Transmission Date: 20250409
  Serious: Yes (Hospitalization, Other)
  Sender: INCYTE
  Company Number: FR-002147023-NVSC2024FR200347

PATIENT

DRUGS (2)
  1. RUXOLITINIB [Suspect]
     Active Substance: RUXOLITINIB
     Indication: Polycythaemia vera
     Route: 065
     Dates: start: 202101
  2. RUXOLITINIB [Suspect]
     Active Substance: RUXOLITINIB
     Route: 065

REACTIONS (8)
  - Chills [Unknown]
  - Seizure [Unknown]
  - Myelofibrosis [Unknown]
  - Feeling cold [Unknown]
  - Pneumonia [Unknown]
  - Blood sodium decreased [Unknown]
  - Confusional state [Unknown]
  - Weight increased [Unknown]

NARRATIVE: CASE EVENT DATE: 20210101
